FAERS Safety Report 8390472-2 (Version None)
Quarter: 2012Q2

REPORT INFORMATION
  Report Type: 
  Country: None (occurrence: None)
  Receive Date: 20120516
  Receipt Date: 20120510
  Transmission Date: 20120825
  Serious: Yes (Other)
  Sender: FDA-Public Use
  Company Number: DSA_56262_2012

PATIENT
  Sex: Male
  Weight: 73.9363 kg

DRUGS (2)
  1. XENAZINE [Suspect]
     Indication: HUNTINGTON'S DISEASE
     Dosage: (12.5 MG TID ORAL)
     Route: 048
     Dates: start: 20120315
  2. LEXAPRO [Concomitant]

REACTIONS (10)
  - CHEST DISCOMFORT [None]
  - DIZZINESS [None]
  - ANXIETY [None]
  - MUSCLE TIGHTNESS [None]
  - MALAISE [None]
  - TREMOR [None]
  - SUICIDAL IDEATION [None]
  - DYSPNOEA [None]
  - STRESS [None]
  - DEPRESSION [None]
